FAERS Safety Report 10729835 (Version 1)
Quarter: 2015Q1

REPORT INFORMATION
  Report Type: Spontaneous
  Country: US (occurrence: US)
  Receive Date: 20150122
  Receipt Date: 20150122
  Transmission Date: 20150721
  Serious: Yes (Death, Other)
  Sender: FDA-Public Use
  Company Number: US-GLAXOSMITHKLINE-US2015GSK003308

PATIENT
  Age: 30 Year
  Sex: Female

DRUGS (3)
  1. ETHANOL [Suspect]
     Active Substance: ALCOHOL
     Route: 065
  2. HEROIN [Suspect]
     Active Substance: DIACETYLMORPHINE
     Route: 065
  3. BUPROPION [Suspect]
     Active Substance: BUPROPION
     Route: 065

REACTIONS (2)
  - Drug abuse [Fatal]
  - Death [Fatal]
